FAERS Safety Report 7670398-X (Version None)
Quarter: 2011Q3

REPORT INFORMATION
  Report Type: 
  Country: None (occurrence: None)
  Receive Date: 20110809
  Receipt Date: 20110727
  Transmission Date: 20111222
  Serious: No
  Sender: FDA-Public Use
  Company Number: US-BIOGENIDEC-2011BI028331

PATIENT
  Age: 36 Year
  Sex: Female

DRUGS (2)
  1. TYSABRI [Suspect]
     Indication: MULTIPLE SCLEROSIS
     Route: 042
     Dates: start: 20110512
  2. ANTI CONVULSION MEDICATION (NOS) [Concomitant]
     Indication: CONVULSION

REACTIONS (7)
  - FATIGUE [None]
  - MOBILITY DECREASED [None]
  - MOOD SWINGS [None]
  - EYE PAIN [None]
  - MUSCLE SPASMS [None]
  - VISION BLURRED [None]
  - PAIN [None]
